FAERS Safety Report 9336659 (Version 1)
Quarter: 2013Q2

REPORT INFORMATION
  Report Type: Report from Study
  Country: US (occurrence: US)
  Receive Date: 20130607
  Receipt Date: 20130607
  Transmission Date: 20140414
  Serious: Yes (Hospitalization)
  Sender: FDA-Public Use
  Company Number: PHEH2013US012153

PATIENT
  Sex: Female

DRUGS (5)
  1. AFINITOR [Suspect]
     Indication: BRAIN NEOPLASM
     Dosage: 7.5 MG, QD
     Route: 048
     Dates: start: 20130603
  2. VALPROIC ACID [Concomitant]
     Dosage: 750 MG, BID
     Route: 048
  3. LAMOTRIGINE [Concomitant]
     Dosage: 100 MG, DAILY
     Route: 048
  4. ENALAPRIL [Concomitant]
     Indication: HYPERTENSION
     Dosage: 20 MG, DAILY
     Route: 048
  5. MULTIVITAMINS [Concomitant]
     Dosage: DAILY
     Route: 048

REACTIONS (1)
  - Neoplasm [Unknown]
